FAERS Safety Report 16242423 (Version 1)
Quarter: 2019Q2

REPORT INFORMATION
  Report Type: Spontaneous
  Country: PL (occurrence: PL)
  Receive Date: 20190426
  Receipt Date: 20190426
  Transmission Date: 20190711
  Serious: Yes (Death)
  Sender: FDA-Public Use
  Company Number: PL-ACCORD-124095

PATIENT
  Age: 70 Year
  Sex: Female
  Weight: 78 kg

DRUGS (2)
  1. ETOPOSID EBEWE [Suspect]
     Active Substance: ETOPOSIDE
     Indication: MALIGNANT RESPIRATORY TRACT NEOPLASM
     Dosage: FIRST CYCLE OF CHEMOTHERAPY
     Route: 042
     Dates: start: 20190114, end: 20190116
  2. CISPLATIN ACCORD [Suspect]
     Active Substance: CISPLATIN
     Indication: MALIGNANT RESPIRATORY TRACT NEOPLASM
     Dosage: FIRST CYCLE OF CHEMOTHERAPY
     Route: 042
     Dates: start: 20190114, end: 20190116

REACTIONS (4)
  - Sepsis [Fatal]
  - Septic shock [Fatal]
  - Pancytopenia [Fatal]
  - Diarrhoea [Fatal]

NARRATIVE: CASE EVENT DATE: 20190118
